FAERS Safety Report 11403397 (Version 1)
Quarter: 2015Q3

REPORT INFORMATION
  Report Type: Spontaneous
  Country: US (occurrence: None)
  Receive Date: 20150807
  Receipt Date: 20150807
  Transmission Date: 20151125
  Serious: No
  Sender: FDA-Public Use
  Company Number: 2015FE02444

PATIENT
  Age: 82 Year
  Sex: Female
  Weight: 67.1 kg

DRUGS (3)
  1. PREPOPIK [Suspect]
     Active Substance: ANHYDROUS CITRIC ACID\MAGNESIUM OXIDE\SODIUM PICOSULFATE
     Indication: BOWEL PREPARATION
     Route: 048
     Dates: start: 20150629, end: 20150629
  2. ZOCOR [Concomitant]
     Active Substance: SIMVASTATIN
  3. PREPOPIK [Suspect]
     Active Substance: ANHYDROUS CITRIC ACID\MAGNESIUM OXIDE\SODIUM PICOSULFATE
     Indication: COLONOSCOPY
     Route: 048
     Dates: start: 20150629, end: 20150629

REACTIONS (3)
  - Diarrhoea [None]
  - Tongue discolouration [None]
  - Abdominal pain [None]

NARRATIVE: CASE EVENT DATE: 20150630
